FAERS Safety Report 8133970-9 (Version None)
Quarter: 2012Q1

REPORT INFORMATION
  Report Type: 
  Country: None (occurrence: None)
  Receive Date: 20120213
  Receipt Date: 20120131
  Transmission Date: 20120608
  Serious: Yes (Disabling)
  Sender: FDA-Public Use
  Company Number: FR-MYLANLABS-2012S1002182

PATIENT
  Sex: Female

DRUGS (5)
  1. MIANSERINE [Suspect]
  2. ATENOLOL [Suspect]
  3. MIANSERINE [Concomitant]
     Indication: PRODUCT USED FOR UNKNOWN INDICATION
  4. ATENOLOL [Concomitant]
     Indication: PRODUCT USED FOR UNKNOWN INDICATION
  5. TRAMADOL HCL [Suspect]
     Indication: PAIN
     Dates: start: 19980101

REACTIONS (1)
  - SLEEP APNOEA SYNDROME [None]
